FAERS Safety Report 16895422 (Version 1)
Quarter: 2019Q4

REPORT INFORMATION
  Report Type: Spontaneous
  Country: IN (occurrence: IN)
  Receive Date: 20191008
  Receipt Date: 20191008
  Transmission Date: 20200122
  Serious: Yes (Other)
  Sender: FDA-Public Use
  Company Number: IN-VALIDUS PHARMACEUTICALS LLC-IN-2019VAL000566

PATIENT

DRUGS (4)
  1. FUROSEMIDE. [Suspect]
     Active Substance: FUROSEMIDE
     Indication: MITRAL VALVE STENOSIS
     Dosage: 20 MG, Q12H
     Route: 065
  2. TORASEMIDE [Suspect]
     Active Substance: TORSEMIDE
     Indication: MITRAL VALVE STENOSIS
     Dosage: 20 MG, Q12H
     Route: 065
  3. ACETYLSALICYLIC ACID [Suspect]
     Active Substance: ASPIRIN
     Indication: RHEUMATIC HEART DISEASE
     Dosage: 2 DF, Q8H (ASPIRIN WAS STARTED IN THE DOSE OF TWO 325 MG TABLETS THREE TIMES A DAY)
     Route: 065
  4. METOPROLOL SUCCINATE. [Concomitant]
     Active Substance: METOPROLOL SUCCINATE
     Indication: PRODUCT USED FOR UNKNOWN INDICATION
     Dosage: UNK

REACTIONS (3)
  - Ulcer [Unknown]
  - Gout [Recovered/Resolved]
  - Skin erosion [Unknown]
